FAERS Safety Report 6204478-2 (Version None)
Quarter: 2009Q2

REPORT INFORMATION
  Report Type: 
  Country: None (occurrence: None)
  Receive Date: 20090527
  Receipt Date: 20090515
  Transmission Date: 20091009
  Serious: Yes (Other)
  Sender: FDA-Public Use
  Company Number: JP-PFIZER INC-2009191390

PATIENT
  Age: 4 Year

DRUGS (1)
  1. NORDITROPIN [Suspect]
     Indication: HYPOPITUITARISM
     Dosage: 1.7 MG, WEEKLY
     Route: 058

REACTIONS (1)
  - BLOOD ALKALINE PHOSPHATASE INCREASED [None]
